FAERS Safety Report 7101224-5 (Version None)
Quarter: 2010Q4

REPORT INFORMATION
  Report Type: 
  Country: None (occurrence: None)
  Receive Date: 20101115
  Receipt Date: 20101101
  Transmission Date: 20110411
  Serious: No
  Sender: FDA-Public Use
  Company Number: US-JNJFOC-20101101756

PATIENT
  Sex: Female
  Weight: 68.04 kg

DRUGS (5)
  1. FENTANYL [Suspect]
     Indication: PAIN
     Dosage: NDC: 0781-7243-55
     Route: 062
  2. CLONAZEPAM [Concomitant]
     Indication: ANXIETY
     Dosage: 1 MG 1 TABLET IN THE MORNING AND 2 TABLETS AT NIGHT
     Route: 048
  3. REMERON [Concomitant]
     Indication: INSOMNIA
     Route: 048
  4. REMERON [Concomitant]
     Indication: ANTIDEPRESSANT THERAPY
     Route: 048
  5. PREVACID [Concomitant]
     Indication: GASTROOESOPHAGEAL REFLUX DISEASE
     Route: 048

REACTIONS (2)
  - PRODUCT ADHESION ISSUE [None]
  - WRONG TECHNIQUE IN DRUG USAGE PROCESS [None]
